FAERS Safety Report 11393237 (Version 1)
Quarter: 2015Q3

REPORT INFORMATION
  Report Type: Spontaneous
  Country: US (occurrence: US)
  Receive Date: 20150818
  Receipt Date: 20150818
  Transmission Date: 20151125
  Serious: No
  Sender: FDA-Public Use
  Company Number: US-BAUSCH-BL-2014-007598

PATIENT
  Sex: Female

DRUGS (3)
  1. ACYCLOVIR. [Suspect]
     Active Substance: ACYCLOVIR
     Indication: PRODUCT USED FOR UNKNOWN INDICATION
     Dates: start: 20140923
  2. DIFLUCAN [Concomitant]
     Active Substance: FLUCONAZOLE
     Indication: STOMATITIS
  3. AFINITOR [Concomitant]
     Active Substance: EVEROLIMUS
     Indication: PRODUCT USED FOR UNKNOWN INDICATION
     Dates: start: 20140915

REACTIONS (4)
  - Weight decreased [Unknown]
  - Condition aggravated [Unknown]
  - Stomatitis [Unknown]
  - Eating disorder [Unknown]
